FAERS Safety Report 20684319 (Version 1)
Quarter: 2022Q2

REPORT INFORMATION
  Report Type: Spontaneous
  Country: FR (occurrence: FR)
  Receive Date: 20220407
  Receipt Date: 20220407
  Transmission Date: 20220721
  Serious: Yes (Other)
  Sender: FDA-Public Use
  Company Number: None

PATIENT
  Age: 65 Year
  Sex: Female

DRUGS (2)
  1. ARAVA [Suspect]
     Active Substance: LEFLUNOMIDE
     Indication: Rheumatoid arthritis
     Dosage: 10 MG, QD; 10 MG*1X/D
     Route: 048
     Dates: start: 20211228, end: 20220118
  2. ETANERCEPT [Suspect]
     Active Substance: ETANERCEPT
     Indication: Rheumatoid arthritis
     Dosage: 2 DF; 1DF ON 06/01/2022 AND 1DF ON 13/01/2022
     Route: 058
     Dates: start: 20220106, end: 20220113

REACTIONS (1)
  - Thrombocytopenia [Recovered/Resolved]
